FAERS Safety Report 5679546-4 (Version None)
Quarter: 2008Q1

REPORT INFORMATION
  Report Type: 
  Country: None (occurrence: None)
  Receive Date: 20080325
  Receipt Date: 20080313
  Transmission Date: 20080703
  Serious: Yes (Hospitalization)
  Sender: FDA-Public Use
  Company Number: AU-PFIZER INC-2008024235

PATIENT
  Age: 37 Year
  Sex: Female

DRUGS (3)
  1. NEURONTIN [Suspect]
     Indication: EPILEPSY
  2. LAMOTRIGINE [Concomitant]
  3. CITALOPRAM [Concomitant]

REACTIONS (6)
  - BALANCE DISORDER [None]
  - CLUSTER HEADACHE [None]
  - DYSARTHRIA [None]
  - DYSPHAGIA [None]
  - PARAESTHESIA [None]
  - SPEECH DISORDER [None]
